FAERS Safety Report 15340353 (Version 2)
Quarter: 2018Q3

REPORT INFORMATION
  Report Type: Report from Study
  Country: US (occurrence: US)
  Receive Date: 20180831
  Receipt Date: 20180928
  Transmission Date: 20181010
  Serious: Yes (Other)
  Sender: FDA-Public Use
  Company Number: US-PFIZER INC-2018243420

PATIENT
  Age: 61 Year
  Sex: Female

DRUGS (1)
  1. IBRANCE [Suspect]
     Active Substance: PALBOCICLIB
     Indication: BREAST CANCER FEMALE
     Dosage: 125 MG, CYCLIC [DAILY 21 DAYS ON, 7 DAYS OFF/ 21 ON, 7 OFF]
     Route: 048
     Dates: start: 20180501

REACTIONS (29)
  - Alopecia [Not Recovered/Not Resolved]
  - Rhinorrhoea [Unknown]
  - Breast tenderness [Unknown]
  - Bone marrow failure [Unknown]
  - Neutropenia [Unknown]
  - Fatigue [Not Recovered/Not Resolved]
  - Increased tendency to bruise [Unknown]
  - Diarrhoea [Recovering/Resolving]
  - Gingival pain [Not Recovered/Not Resolved]
  - Pyrexia [Unknown]
  - Condition aggravated [Not Recovered/Not Resolved]
  - Anxiety [Not Recovered/Not Resolved]
  - Weight decreased [Recovering/Resolving]
  - Memory impairment [Unknown]
  - Leukopenia [Unknown]
  - Groin pain [Not Recovered/Not Resolved]
  - Asthenia [Unknown]
  - Oropharyngeal pain [Unknown]
  - Anaemia [Unknown]
  - Lymphadenopathy [Not Recovered/Not Resolved]
  - Melanocytic naevus [Unknown]
  - Drug dose omission [Unknown]
  - Full blood count decreased [Unknown]
  - Nausea [Unknown]
  - Breast pain [Not Recovered/Not Resolved]
  - Decreased appetite [Recovering/Resolving]
  - Pain in jaw [Not Recovered/Not Resolved]
  - Acrochordon [Unknown]
  - Depressed mood [Unknown]

NARRATIVE: CASE EVENT DATE: 2018
